FAERS Safety Report 9027669 (Version 1)
Quarter: 2013Q1

REPORT INFORMATION
  Report Type: Spontaneous
  Country: US (occurrence: US)
  Receive Date: 20130124
  Receipt Date: 20130124
  Transmission Date: 20140127
  Serious: No
  Sender: FDA-Public Use
  Company Number: US-BIOGENIDEC-2013BI005477

PATIENT
  Age: 48 Year
  Sex: Female

DRUGS (1)
  1. AVONEX [Suspect]
     Indication: MULTIPLE SCLEROSIS
     Route: 030
     Dates: start: 20121117

REACTIONS (4)
  - Nasopharyngitis [Not Recovered/Not Resolved]
  - Chills [Recovered/Resolved]
  - Depression [Not Recovered/Not Resolved]
  - Muscle spasms [Recovered/Resolved]
